FAERS Safety Report 6128098-3 (Version None)
Quarter: 2009Q1

REPORT INFORMATION
  Report Type: 
  Country: None (occurrence: None)
  Receive Date: 20090323
  Receipt Date: 20090311
  Transmission Date: 20090719
  Serious: Yes (Other)
  Sender: FDA-Public Use
  Company Number: US-BRISTOL-MYERS SQUIBB COMPANY-14539985

PATIENT
  Sex: Female

DRUGS (3)
  1. PRAVACHOL [Suspect]
  2. CRESTOR [Suspect]
  3. LOVASTATIN [Concomitant]

REACTIONS (1)
  - BLINDNESS [None]
